FAERS Safety Report 8323128-2 (Version None)
Quarter: 2012Q2

REPORT INFORMATION
  Report Type: 
  Country: None (occurrence: None)
  Receive Date: 20120430
  Receipt Date: 20120423
  Transmission Date: 20120825
  Serious: Yes (Hospitalization)
  Sender: FDA-Public Use
  Company Number: PHHO2012DE006312

PATIENT
  Sex: Male
  Weight: 76.2 kg

DRUGS (4)
  1. MYFORTIC [Suspect]
     Indication: RENAL TRANSPLANT
     Dosage: 720 MG, UNK
     Route: 048
     Dates: start: 20120310
  2. PROGRAF [Suspect]
     Indication: RENAL TRANSPLANT
     Dosage: UNK
     Dates: start: 20120310
  3. SIMULECT [Concomitant]
     Indication: RENAL TRANSPLANT
     Dosage: 200 MG, UNK
     Route: 042
     Dates: start: 20120310
  4. PREDNISONE [Suspect]
     Indication: RENAL TRANSPLANT
     Dosage: 30 MG, UNK
     Route: 048
     Dates: start: 20120311

REACTIONS (2)
  - PYELONEPHRITIS [None]
  - DIABETES MELLITUS [None]
